FAERS Safety Report 20662986 (Version 1)
Quarter: 2022Q2

REPORT INFORMATION
  Report Type: Report from Study
  Country: US (occurrence: US)
  Receive Date: 20220401
  Receipt Date: 20220401
  Transmission Date: 20220720
  Serious: Yes (Hospitalization, Other)
  Sender: FDA-Public Use
  Company Number: US-GILEAD-2022-0575951

PATIENT
  Sex: Male

DRUGS (5)
  1. AMBRISENTAN [Suspect]
     Active Substance: AMBRISENTAN
     Indication: Pulmonary arterial hypertension
     Dosage: 10 MG, QD
     Route: 065
  2. ADCIRCA [Concomitant]
     Active Substance: TADALAFIL
  3. AMIODARONE [Concomitant]
     Active Substance: AMIODARONE
  4. XARELTO [Concomitant]
     Active Substance: RIVAROXABAN
  5. DIGOXIN [Concomitant]
     Active Substance: DIGOXIN

REACTIONS (1)
  - Intestinal obstruction [Unknown]
